FAERS Safety Report 20461121 (Version 2)
Quarter: 2022Q1

REPORT INFORMATION
  Report Type: Report from Study
  Country: US (occurrence: US)
  Receive Date: 20220211
  Receipt Date: 20220214
  Transmission Date: 20220423
  Serious: No
  Sender: FDA-Public Use
  Company Number: US-HRARD-2021000778

PATIENT
  Sex: Female

DRUGS (5)
  1. LYSODREN [Suspect]
     Active Substance: MITOTANE
     Dosage: 01 TABLET TWICE A DAY
     Route: 048
     Dates: start: 20201210
  2. LYSODREN [Suspect]
     Active Substance: MITOTANE
     Dosage: 04 TABLETS TWICE A DAY
     Route: 048
  3. LYSODREN [Suspect]
     Active Substance: MITOTANE
     Dosage: 02 TABLETS DAILY; INTERRUPTION OF 05 DOSES
     Route: 048
     Dates: start: 202103
  4. CLONIDINE [Concomitant]
     Active Substance: CLONIDINE
  5. LABETALOL [Concomitant]
     Active Substance: LABETALOL\LABETALOL HYDROCHLORIDE

REACTIONS (2)
  - Adverse event [Unknown]
  - Fatigue [Not Recovered/Not Resolved]

NARRATIVE: CASE EVENT DATE: 20210101
